FAERS Safety Report 7231011-9 (Version None)
Quarter: 2011Q1

REPORT INFORMATION
  Report Type: 
  Country: None (occurrence: None)
  Receive Date: 20110118
  Receipt Date: 20110107
  Transmission Date: 20110831
  Serious: Yes (Hospitalization)
  Sender: FDA-Public Use
  Company Number: US-ROCHE-752606

PATIENT
  Sex: Female

DRUGS (1)
  1. BONIVA [Suspect]
     Route: 042

REACTIONS (1)
  - CELLULITIS [None]
